FAERS Safety Report 25913056 (Version 3)
Quarter: 2025Q4

REPORT INFORMATION
  Report Type: Report from Study
  Country: ZA (occurrence: ZA)
  Receive Date: 20251013
  Receipt Date: 20251124
  Transmission Date: 20260118
  Serious: Yes (Hospitalization)
  Sender: ROCHE
  Company Number: ZA-ROCHE-10000406516

PATIENT
  Age: 22 Year
  Sex: Male
  Weight: 84 kg

DRUGS (1)
  1. HEMLIBRA [Suspect]
     Active Substance: EMICIZUMAB-KXWH
     Indication: Factor VIII deficiency
     Route: 058
     Dates: start: 202412

REACTIONS (4)
  - Muscle strain [Unknown]
  - Blood test abnormal [Unknown]
  - Injury [Unknown]
  - Joint injury [Unknown]

NARRATIVE: CASE EVENT DATE: 20250901
